FAERS Safety Report 7619677-2 (Version None)
Quarter: 2011Q3

REPORT INFORMATION
  Report Type: 
  Country: None (occurrence: None)
  Receive Date: 20110719
  Receipt Date: 20110708
  Transmission Date: 20111222
  Serious: Yes (Hospitalization, Other)
  Sender: FDA-Public Use
  Company Number: US-BAYER-201034779NA

PATIENT
  Age: 33 Year
  Sex: Female
  Weight: 83.447 kg

DRUGS (8)
  1. YAZ [Suspect]
     Dosage: UNK
     Dates: start: 20070101, end: 20091201
  2. YASMIN [Suspect]
     Dosage: UNK
     Route: 048
     Dates: start: 20070101, end: 20091201
  3. METFORMIN HCL [Concomitant]
     Dosage: 500 MG, UNK
     Route: 048
  4. PHENERGAN [Concomitant]
     Indication: NAUSEA
     Dosage: 12.5 MG, QID
     Route: 048
     Dates: start: 20081105
  5. ACIPHEX [Concomitant]
     Indication: GASTROOESOPHAGEAL REFLUX DISEASE
     Dosage: 40 MG, UNK
  6. DROSPIRENONE AND ETHINYL ESTRADIOL [Suspect]
     Dosage: UNK
     Dates: start: 20070101, end: 20091201
  7. VICODIN [Concomitant]
     Route: 048
  8. CRESTOR [Concomitant]
     Indication: BLOOD CHOLESTEROL INCREASED
     Dosage: UNK
     Dates: start: 20070101

REACTIONS (4)
  - BILIARY COLIC [None]
  - CHOLECYSTITIS CHRONIC [None]
  - PAIN [None]
  - CHOLELITHIASIS [None]
